FAERS Safety Report 8228676-1 (Version None)
Quarter: 2012Q1

REPORT INFORMATION
  Report Type: 
  Country: None (occurrence: None)
  Receive Date: 20120322
  Receipt Date: 20120315
  Transmission Date: 20120608
  Serious: Yes (Death, Other)
  Sender: FDA-Public Use
  Company Number: US-ELI_LILLY_AND_COMPANY-US201202006136

PATIENT
  Age: 70 Year
  Sex: Male

DRUGS (3)
  1. EFFIENT [Suspect]
     Dosage: 10 MG, UNKNOWN
  2. EFFIENT [Suspect]
     Indication: ACUTE MYOCARDIAL INFARCTION
     Dosage: 60 MG, LOADING
  3. HEPARIN [Concomitant]

REACTIONS (2)
  - DEATH [None]
  - HAEMORRHAGE INTRACRANIAL [None]
